FAERS Safety Report 19483129 (Version 1)
Quarter: 2021Q3

REPORT INFORMATION
  Report Type: Spontaneous
  Country: RO (occurrence: RO)
  Receive Date: 20210701
  Receipt Date: 20210701
  Transmission Date: 20211014
  Serious: Yes (Other)
  Sender: FDA-Public Use
  Company Number: RO-TEVA-2021-RO-1927271

PATIENT
  Age: 53 Year
  Sex: Male
  Weight: 105 kg

DRUGS (5)
  1. EMTRICITABINE [Suspect]
     Active Substance: EMTRICITABINE
     Indication: HIV INFECTION CDC CATEGORY C
     Route: 065
     Dates: start: 2014
  2. RITONAVIR?BOOSTED ATAZANAVIR [Suspect]
     Active Substance: ATAZANAVIR\RITONAVIR
     Indication: HIV INFECTION CDC CATEGORY C
     Route: 065
     Dates: start: 2014
  3. GLICLAZIDE [Concomitant]
     Active Substance: GLICLAZIDE
     Indication: TYPE 2 DIABETES MELLITUS
     Route: 048
  4. METFORMIN [Concomitant]
     Active Substance: METFORMIN HYDROCHLORIDE
     Indication: TYPE 2 DIABETES MELLITUS
     Route: 048
  5. TENOFOVIR?DISOPROXIL?FUMARATE [Suspect]
     Active Substance: TENOFOVIR DISOPROXIL FUMARATE
     Indication: HIV INFECTION CDC CATEGORY C
     Route: 065
     Dates: start: 2014

REACTIONS (17)
  - Chronic kidney disease [Recovering/Resolving]
  - Obesity [Unknown]
  - Dyslipidaemia [Unknown]
  - Hypertriglyceridaemia [Unknown]
  - Vitamin D deficiency [Unknown]
  - Renal hypertension [Unknown]
  - Hyperglycaemia [Unknown]
  - Hepatic steatosis [Unknown]
  - Hyperbilirubinaemia [Unknown]
  - Haemangioma of liver [Unknown]
  - Osteoporosis [Unknown]
  - Normochromic normocytic anaemia [Unknown]
  - Cholestasis [Unknown]
  - Hepatic calcification [Unknown]
  - Proteinuria [Unknown]
  - Hypocalcaemia [Unknown]
  - Hypophosphataemia [Unknown]
